FAERS Safety Report 11174005 (Version 3)
Quarter: 2015Q3

REPORT INFORMATION
  Report Type: Spontaneous
  Country: CO (occurrence: CO)
  Receive Date: 20150609
  Receipt Date: 20150715
  Transmission Date: 20151125
  Serious: Yes (Death, Hospitalization)
  Sender: FDA-Public Use
  Company Number: CO-JNJFOC-20150604830

PATIENT
  Age: 77 Year
  Sex: Male
  Weight: 68 kg

DRUGS (6)
  1. FUROSEMIDE. [Concomitant]
     Active Substance: FUROSEMIDE
     Indication: HYPERTENSION
     Route: 048
     Dates: start: 19900615
  2. PREDNISOLONE. [Concomitant]
     Active Substance: PREDNISOLONE
     Indication: PROSTATE CANCER
     Route: 048
     Dates: start: 20141030, end: 20150530
  3. METFORMIN [Concomitant]
     Active Substance: METFORMIN HYDROCHLORIDE
     Indication: DIABETES MELLITUS
     Route: 048
     Dates: start: 19900615
  4. VERAPAMIL [Concomitant]
     Active Substance: VERAPAMIL HYDROCHLORIDE
     Indication: HYPERTENSION
     Route: 048
     Dates: start: 19900615
  5. LOSARTAN. [Concomitant]
     Active Substance: LOSARTAN
     Indication: HYPERTENSION
     Route: 048
     Dates: start: 19900615
  6. ZYTIGA [Suspect]
     Active Substance: ABIRATERONE ACETATE
     Indication: PROSTATE CANCER
     Route: 048
     Dates: start: 20141030, end: 20150530

REACTIONS (2)
  - Cerebrovascular accident [Not Recovered/Not Resolved]
  - Death [Fatal]

NARRATIVE: CASE EVENT DATE: 20150530
